FAERS Safety Report 9225486 (Version 1)
Quarter: 2013Q2

REPORT INFORMATION
  Report Type: Report from Study
  Country: CA (occurrence: CA)
  Receive Date: 20130411
  Receipt Date: 20130411
  Transmission Date: 20140414
  Serious: Yes (Other)
  Sender: FDA-Public Use
  Company Number: CA-JNJFOC-20130402978

PATIENT
  Age: 38 Year
  Sex: Male
  Weight: 79.6 kg

DRUGS (5)
  1. REMICADE [Suspect]
     Indication: CROHN^S DISEASE
     Route: 042
     Dates: start: 20080811
  2. VITAMIN B12 [Concomitant]
     Route: 065
  3. IMURAN [Concomitant]
     Route: 065
  4. IRON [Concomitant]
     Route: 065
  5. MORPHINE [Concomitant]
     Route: 065

REACTIONS (2)
  - Renal colic [Recovering/Resolving]
  - Calculus urinary [Unknown]
